FAERS Safety Report 5021393-0 (Version None)
Quarter: 2006Q2

REPORT INFORMATION
  Report Type: 
  Country: None (occurrence: None)
  Receive Date: 20060605
  Receipt Date: 20060523
  Transmission Date: 20061013
  Serious: Yes (Hospitalization, Other)
  Sender: FDA-Public Use
  Company Number: 2005124456

PATIENT
  Age: 46 Year
  Sex: Male
  Weight: 111.1313 kg

DRUGS (1)
  1. CELEBREX [Suspect]
     Indication: ARTHROPATHY
     Dosage: 200 MG (200 MG, 1 IN 1 D)
     Dates: start: 20040101, end: 20040524

REACTIONS (6)
  - ASTHENIA [None]
  - BLOOD CHOLESTEROL INCREASED [None]
  - FATIGUE [None]
  - HEART VALVE INSUFFICIENCY [None]
  - HYPERTENSIVE HEART DISEASE [None]
  - MYOCARDIAL INFARCTION [None]
